FAERS Safety Report 4975803-5 (Version None)
Quarter: 2006Q2

REPORT INFORMATION
  Report Type: 
  Country: None (occurrence: None)
  Receive Date: 20060411
  Receipt Date: 20060323
  Transmission Date: 20061013
  Serious: Yes (Hospitalization, Other)
  Sender: FDA-Public Use
  Company Number: EWC991104846

PATIENT
  Age: 2 Year
  Sex: Male
  Weight: 2 kg

DRUGS (6)
  1. HUMALOG [Suspect]
     Indication: DIABETES MELLITUS INSULIN-DEPENDENT
     Dosage: 1.5 U, DAILY (1/D), SUBCUTANEOUS
     Route: 058
     Dates: start: 19990701, end: 19990901
  2. HUMULIN R [Suspect]
     Indication: DIABETES MELLITUS INSULIN-DEPENDENT
     Dosage: SUBCUTANEOUS; 4 U EAC MORNING, SUBCUTANEOUS; 0.5 U, EACH EVENING, SUBCUTANEOUS
     Route: 058
     Dates: start: 19980701, end: 19990701
  3. HUMULIN R [Suspect]
     Indication: DIABETES MELLITUS INSULIN-DEPENDENT
     Dosage: SUBCUTANEOUS; 4 U EAC MORNING, SUBCUTANEOUS; 0.5 U, EACH EVENING, SUBCUTANEOUS
     Route: 058
     Dates: start: 19990901, end: 19991129
  4. HUMULIN R [Suspect]
     Indication: DIABETES MELLITUS INSULIN-DEPENDENT
     Dosage: SUBCUTANEOUS; 4 U EAC MORNING, SUBCUTANEOUS; 0.5 U, EACH EVENING, SUBCUTANEOUS
     Route: 058
     Dates: start: 19990901, end: 19991129
  5. HUMULIN R [Suspect]
     Indication: DIABETES MELLITUS INSULIN-DEPENDENT
     Dosage: SUBCUTANEOUS; 4 U EAC MORNING, SUBCUTANEOUS; 0.5 U, EACH EVENING, SUBCUTANEOUS
     Route: 058
     Dates: start: 19991101
  6. HUMULIN I (INSULIN INJECTION, ISOPHANE) [Concomitant]

REACTIONS (13)
  - AUTOANTIBODY POSITIVE [None]
  - CATHETER SITE INFECTION [None]
  - DRUG HYPERSENSITIVITY [None]
  - DRUG INEFFECTIVE [None]
  - EOSINOPHILIA [None]
  - HYPERTRICHOSIS [None]
  - HYPOGLYCAEMIA [None]
  - INJECTION SITE ERYTHEMA [None]
  - INJECTION SITE PRURITUS [None]
  - INSULIN C-PEPTIDE DECREASED [None]
  - LIPOATROPHY [None]
  - RASH PAPULAR [None]
  - SKIN INFECTION [None]
